FAERS Safety Report 4380509-X (Version None)
Quarter: 2004Q2

REPORT INFORMATION
  Report Type: 
  Country: None (occurrence: None)
  Receive Date: 20040614
  Receipt Date: 20031208
  Transmission Date: 20050107
  Serious: Yes (Life-Threatening, Hospitalization)
  Sender: FDA-Public Use
  Company Number: WAES 0312USA00898

PATIENT
  Age: 73 Year
  Sex: Female

DRUGS (4)
  1. COZAAR [Suspect]
     Indication: HYPERTENSION
     Dosage: 25 MG/DAILY/PO
     Route: 048
     Dates: start: 20030101, end: 20031206
  2. PREMARIN [Concomitant]
  3. ASPIRIN [Concomitant]
  4. VITAMINS (UNSPECIFIED) [Concomitant]

REACTIONS (3)
  - ATRIAL FIBRILLATION [None]
  - CORONARY ARTERY INSUFFICIENCY [None]
  - FATIGUE [None]
